FAERS Safety Report 21972716 (Version 1)
Quarter: 2023Q1

REPORT INFORMATION
  Report Type: Spontaneous
  Country: US (occurrence: US)
  Receive Date: 20230209
  Receipt Date: 20230209
  Transmission Date: 20230417
  Serious: No
  Sender: FDA-Public Use
  Company Number: US-TAKEDA-2023TUS013881

PATIENT
  Sex: Female
  Weight: 82 kg

DRUGS (4)
  1. ENTYVIO [Suspect]
     Active Substance: VEDOLIZUMAB
     Indication: Crohn^s disease
     Dosage: UNK
     Route: 042
     Dates: start: 20220701
  2. TRAZODONE [Concomitant]
     Active Substance: TRAZODONE HYDROCHLORIDE
     Dosage: UNK
  3. METHOTREXATE [Concomitant]
     Active Substance: METHOTREXATE
     Dosage: UNK
  4. METOPROLOL [Concomitant]
     Active Substance: METOPROLOL
     Indication: Blood pressure measurement
     Dosage: UNK

REACTIONS (2)
  - Nasopharyngitis [Unknown]
  - Sinusitis [Unknown]
